FAERS Safety Report 7424264-5 (Version None)
Quarter: 2011Q2

REPORT INFORMATION
  Report Type: 
  Country: None (occurrence: None)
  Receive Date: 20110419
  Receipt Date: 20110408
  Transmission Date: 20111010
  Serious: Yes (Other)
  Sender: FDA-Public Use
  Company Number: NL-BRISTOL-MYERS SQUIBB COMPANY-15679327

PATIENT
  Age: 53 Year
  Sex: Male

DRUGS (5)
  1. ACENOCOUMAROL [Interacting]
     Dosage: INCREASED FRM 4 TO 12MG/DAY AND STABLE AT 12MG/DAY
  2. STAVUDINE [Suspect]
     Indication: ANTIRETROVIRAL THERAPY
  3. LAMIVUDINE [Interacting]
     Indication: HIV INFECTION
     Dosage: 3TC
     Dates: start: 20061101
  4. NELFINAVIR [Interacting]
     Indication: ANTIRETROVIRAL THERAPY
  5. RITONAVIR [Interacting]
     Indication: ANTIRETROVIRAL THERAPY

REACTIONS (2)
  - INTERNATIONAL NORMALISED RATIO DECREASED [None]
  - DRUG INTERACTION [None]
